FAERS Safety Report 7731435-7 (Version None)
Quarter: 2011Q3

REPORT INFORMATION
  Report Type: 
  Country: None (occurrence: None)
  Receive Date: 20110906
  Receipt Date: 20110830
  Transmission Date: 20111222
  Serious: Yes (Death, Hospitalization)
  Sender: FDA-Public Use
  Company Number: IT-BAYER-2011-064591

PATIENT
  Age: 95 Year
  Sex: Female

DRUGS (5)
  1. CIPROFLAXACIN [Suspect]
     Indication: HYPERPYREXIA
     Dosage: 500 MG, QD
     Route: 048
     Dates: start: 20110701, end: 20110705
  2. CEFTRIAXONE SODIUM [Suspect]
     Indication: HYPERPYREXIA
     Dosage: 2 G, BID
     Route: 042
     Dates: start: 20110630, end: 20110705
  3. ACE INHIBITOR NOS [Concomitant]
  4. BACTRIM [Suspect]
     Indication: HYPERPYREXIA
     Dosage: DAILY DOSE 4 DF
     Route: 048
     Dates: start: 20110625, end: 20110701
  5. DIURETICS [Concomitant]

REACTIONS (7)
  - HYPERPYREXIA [None]
  - SEPSIS [None]
  - DECUBITUS ULCER [None]
  - PYREXIA [None]
  - FEBRILE BONE MARROW APLASIA [None]
  - CANDIDA TEST POSITIVE [None]
  - HYPOTENSION [None]
